FAERS Safety Report 9885577 (Version 2)
Quarter: 2014Q1

REPORT INFORMATION
  Report Type: Spontaneous
  Country: US (occurrence: US)
  Receive Date: 20140210
  Receipt Date: 20140210
  Transmission Date: 20141002
  Serious: Yes (Other)
  Sender: FDA-Public Use
  Company Number: US-GILEAD-2011-0041118

PATIENT
  Age: 59 Year
  Sex: Female

DRUGS (7)
  1. VIREAD [Suspect]
     Indication: HEPATITIS B
     Dates: start: 20110413, end: 20110617
  2. FOSAMAX [Concomitant]
  3. PREMARIN [Concomitant]
  4. SYNTHROID [Concomitant]
  5. TYLENOL [Concomitant]
  6. CALCIUM + VITAMIN D [Concomitant]
  7. BARACLUDE [Concomitant]

REACTIONS (1)
  - Pancreatitis acute [Recovering/Resolving]
